FAERS Safety Report 19620994 (Version 6)
Quarter: 2022Q4

REPORT INFORMATION
  Report Type: Report from Study
  Country: DE (occurrence: DE)
  Receive Date: 20210728
  Receipt Date: 20221010
  Transmission Date: 20230113
  Serious: Yes (Hospitalization, Other)
  Sender: FDA-Public Use
  Company Number: DE-ABBVIE-21K-062-4005453-00

PATIENT
  Age: 71 Year
  Sex: Female
  Weight: 75 kg

DRUGS (23)
  1. ADALIMUMAB [Suspect]
     Active Substance: ADALIMUMAB
     Indication: Rheumatoid arthritis
     Route: 058
     Dates: start: 200602, end: 201901
  2. UPADACITINIB [Suspect]
     Active Substance: UPADACITINIB
     Indication: Rheumatoid arthritis
     Route: 048
     Dates: start: 20210401, end: 20210601
  3. Severe acute respiratory syndrome vaccine [Concomitant]
     Indication: Product used for unknown indication
     Dates: start: 20220119
  4. Severe acute respiratory syndrome vaccine [Concomitant]
     Indication: Product used for unknown indication
     Dates: start: 20210604, end: 20210604
  5. Severe acute respiratory syndrome vaccine [Concomitant]
     Indication: Product used for unknown indication
     Dates: start: 20210715, end: 20210715
  6. PREDNISOLONE [Concomitant]
     Active Substance: PREDNISOLONE
     Indication: Rheumatoid arthritis
     Route: 048
     Dates: start: 20210324, end: 20220422
  7. PREDNISOLONE [Concomitant]
     Active Substance: PREDNISOLONE
     Indication: Rheumatoid arthritis
     Dates: start: 20220504
  8. ACETAMINOPHEN [Concomitant]
     Active Substance: ACETAMINOPHEN
     Indication: Rheumatoid arthritis
     Dosage: TIME INTERVAL: AS NECESSARY: AS NEEDED
     Route: 048
     Dates: start: 2015
  9. RAMIPRIL [Concomitant]
     Active Substance: RAMIPRIL
     Indication: Hypertension
     Route: 048
     Dates: start: 2000
  10. AMLODIPINE BESYLATE [Concomitant]
     Active Substance: AMLODIPINE BESYLATE
     Indication: Hypertension
     Route: 048
     Dates: start: 2000
  11. IODINE [Concomitant]
     Active Substance: IODINE
     Indication: Goitre
     Route: 048
     Dates: start: 2000
  12. XARELTO [Concomitant]
     Active Substance: RIVAROXABAN
     Indication: Factor V Leiden mutation
     Route: 048
     Dates: start: 2018
  13. VITAMIN D3 [Concomitant]
     Active Substance: CHOLECALCIFEROL
     Indication: Prophylaxis
     Route: 048
     Dates: start: 2000
  14. IODINE [Concomitant]
     Active Substance: IODINE
     Indication: Goitre
     Route: 048
     Dates: start: 2000
  15. ACETAMINOPHEN [Concomitant]
     Active Substance: ACETAMINOPHEN
     Indication: Product used for unknown indication
     Route: 048
     Dates: start: 2015
  16. INFLUENZA VIRUS VACCINE [Concomitant]
     Active Substance: INFLUENZA VIRUS VACCINE
     Indication: Influenza immunisation
     Dosage: SEASONAL
     Dates: start: 20211020
  17. RADIATIO [Concomitant]
     Indication: Prophylaxis
     Dates: start: 20211123, end: 20211216
  18. UNSPECIFIED INGREDIENT [Concomitant]
     Active Substance: UNSPECIFIED INGREDIENT
     Indication: Severe acute respiratory syndrome
     Dates: start: 20210604, end: 20210604
  19. UNSPECIFIED INGREDIENT [Concomitant]
     Active Substance: UNSPECIFIED INGREDIENT
     Indication: Severe acute respiratory syndrome
     Dates: start: 20210715, end: 20210715
  20. UNSPECIFIED INGREDIENT [Concomitant]
     Active Substance: UNSPECIFIED INGREDIENT
     Indication: Severe acute respiratory syndrome
     Dates: start: 20220119, end: 20220119
  21. RITUXIMAB-CHOP [Concomitant]
     Indication: Diffuse large B-cell lymphoma
     Route: 042
     Dates: start: 202106
  22. RITUXIMAB-CHOP [Concomitant]
     Indication: Diffuse large B-cell lymphoma
     Route: 042
     Dates: start: 202106, end: 20211103
  23. INFLUENZA VIRUS VACCINE [Concomitant]
     Active Substance: INFLUENZA VIRUS VACCINE
     Indication: Product used for unknown indication
     Dates: start: 20211020

REACTIONS (4)
  - Diffuse large B-cell lymphoma [Not Recovered/Not Resolved]
  - Mucosal disorder [Recovered/Resolved]
  - Listless [Not Recovered/Not Resolved]
  - Abdominal pain lower [Not Recovered/Not Resolved]

NARRATIVE: CASE EVENT DATE: 20210501
